FAERS Safety Report 4721907-1 (Version None)
Quarter: 2005Q3

REPORT INFORMATION
  Report Type: 
  Country: None (occurrence: None)
  Receive Date: 20050720
  Receipt Date: 20050711
  Transmission Date: 20060218
  Serious: Yes (Other)
  Sender: FDA-Public Use
  Company Number: 2005098444

PATIENT
  Sex: Female
  Weight: 95.709 kg

DRUGS (5)
  1. ZANTAC 75 [Suspect]
     Indication: GASTROOESOPHAGEAL REFLUX DISEASE
     Dosage: 1-2 TABS PRN, ORAL
     Route: 048
     Dates: start: 19970101
  2. OMEPRAZOLE [Concomitant]
  3. DRUG, UNSPECIFIED   (DRUG, UNSPECIFIED) [Concomitant]
  4. CETIRIZINE HCL [Concomitant]
  5. PETIBELLE FILMTABLETTEN (DROSPIRENONE, ETHINYLESTRADIOL) [Concomitant]

REACTIONS (1)
  - WEIGHT DECREASED [None]
